FAERS Safety Report 24717299 (Version 8)
Quarter: 2025Q4

REPORT INFORMATION
  Report Type: Spontaneous
  Country: US (occurrence: US)
  Receive Date: 20241210
  Receipt Date: 20251027
  Transmission Date: 20260118
  Serious: Yes (Other)
  Sender: SANDOZ
  Company Number: US-002147023-NVSC2024US233117

PATIENT
  Sex: Female
  Weight: 68.95 kg

DRUGS (11)
  1. IBRANCE [Suspect]
     Active Substance: PALBOCICLIB
     Indication: Breast cancer metastatic
     Dosage: 1 DOSAGE FORM, QD ( DAILY FOR 21 DAYS AND OFF FOR 7 DAYS) (125 MG CYCLIC )
     Route: 065
     Dates: start: 202308
  2. IBRANCE [Suspect]
     Active Substance: PALBOCICLIB
     Dosage: 125 MG (125 MG, CYCLIC (CONTINUED)
     Route: 048
     Dates: start: 202308
  3. IBRANCE [Suspect]
     Active Substance: PALBOCICLIB
     Dosage: 1 DOSAGE FORM, QD, (BY MOUTH DAILY,  DAYS 1-21 EVERY 28 DAYS.)
     Route: 048
  4. IBRANCE [Suspect]
     Active Substance: PALBOCICLIB
     Dosage: 125 MG, QD (TAKE ONE TABLET BY MOUTH DAILY ON DAYS 1-21 OF EACH 28 DAY CYCLE)
     Route: 048
  5. LETROZOLE [Suspect]
     Active Substance: LETROZOLE
     Indication: HER2 positive breast cancer
     Dosage: 2.5 MG, QD
     Route: 065
  6. LETROZOLE [Suspect]
     Active Substance: LETROZOLE
     Indication: Hormone level abnormal
  7. RECLAST [Suspect]
     Active Substance: ZOLEDRONIC ACID
     Indication: Breast cancer
     Dosage: UNK
     Route: 042
  8. ZOMETA [Suspect]
     Active Substance: ZOLEDRONIC ACID
     Indication: HER2 positive breast cancer
     Dosage: UNK (IV DRIP), SOLUTION FOR INFUSION
     Route: 042
     Dates: start: 2024, end: 2024
  9. ZOMETA [Suspect]
     Active Substance: ZOLEDRONIC ACID
     Indication: Breast cancer
  10. HYDRALAZINE [Concomitant]
     Active Substance: HYDRALAZINE HYDROCHLORIDE
     Indication: Hypertension
     Dosage: UNK
     Route: 065
  11. PREDNISONE [Concomitant]
     Active Substance: PREDNISONE
     Indication: Drug hypersensitivity
     Dosage: UNK
     Route: 065

REACTIONS (16)
  - Metastases to bone [Unknown]
  - Malignant neoplasm progression [Unknown]
  - HER2 positive breast cancer [Unknown]
  - Aphasia [Unknown]
  - Hypoacusis [Unknown]
  - Muscle spasms [Unknown]
  - Blood calcium abnormal [Unknown]
  - Condition aggravated [Unknown]
  - Pain [Unknown]
  - Blood potassium increased [Unknown]
  - Haemoglobin decreased [Unknown]
  - Anxiety [Unknown]
  - Insomnia [Unknown]
  - Adverse drug reaction [Unknown]
  - Drug ineffective [Unknown]
  - Product dose omission issue [Unknown]

NARRATIVE: CASE EVENT DATE: 20240101
